FAERS Safety Report 7149632-0 (Version None)
Quarter: 2010Q4

REPORT INFORMATION
  Report Type: 
  Country: None (occurrence: None)
  Receive Date: 20101209
  Receipt Date: 20101126
  Transmission Date: 20110411
  Serious: Yes (Disabling)
  Sender: FDA-Public Use
  Company Number: GB-GENENTECH-310576

PATIENT
  Age: 40 Year
  Sex: Female
  Weight: 75 kg

DRUGS (3)
  1. OMALIZUMAB [Suspect]
     Indication: ASTHMA
     Dosage: 375 MG, UNK
     Route: 058
     Dates: start: 20100101, end: 20100801
  2. ALENDRONATE SODIUM [Suspect]
     Indication: BONE DISORDER
     Dosage: 70 MG, 1/WEEK
     Route: 048
     Dates: start: 20091201
  3. ALENDRONATE SODIUM [Suspect]
     Indication: PROPHYLAXIS

REACTIONS (1)
  - POLYARTHRITIS [None]
